FAERS Safety Report 20979278 (Version 7)
Quarter: 2023Q1

REPORT INFORMATION
  Report Type: Report from Study
  Country: PT (occurrence: PT)
  Receive Date: 20220620
  Receipt Date: 20230304
  Transmission Date: 20230417
  Serious: Yes (Hospitalization, Other)
  Sender: FDA-Public Use
  Company Number: PT-ABBVIE-22K-130-4423951-00

PATIENT
  Age: 68 Year
  Sex: Male

DRUGS (36)
  1. CARBIDOPA\LEVODOPA [Suspect]
     Active Substance: CARBIDOPA\LEVODOPA
     Indication: Parkinson^s disease
     Dosage: 20 MG + 5 MG (VIA PEG)
     Dates: start: 20221021
  2. CARBIDOPA\LEVODOPA [Suspect]
     Active Substance: CARBIDOPA\LEVODOPA
     Dosage: 20 MG PLUS 5 MG?MORN:10CC(PLUS 5CC); MAINT:4.3CC/H; EXTRA:2CC
     Route: 050
     Dates: start: 20220601, end: 202206
  3. CARBIDOPA\LEVODOPA [Suspect]
     Active Substance: CARBIDOPA\LEVODOPA
     Dosage: 20 MG + 5 MG
     Dates: start: 202210, end: 20221021
  4. CARBIDOPA\LEVODOPA [Suspect]
     Active Substance: CARBIDOPA\LEVODOPA
     Dosage: 20 MG PLUS 5 MG?MORN:11.5CC; MAINT:5.3CC/H; EXTRA:2CC
     Route: 050
     Dates: start: 202206, end: 20220603
  5. CARBIDOPA\LEVODOPA [Suspect]
     Active Substance: CARBIDOPA\LEVODOPA
     Dosage: 20 MG + 5 MG
     Dates: start: 20220922, end: 202209
  6. CARBIDOPA\LEVODOPA [Suspect]
     Active Substance: CARBIDOPA\LEVODOPA
     Dosage: 20 MG PLUS 5 MG?MORN:11.5CC;MAINT:5.3CC/H;EXTRA:2CC
     Route: 050
     Dates: start: 20220810, end: 20220818
  7. CARBIDOPA\LEVODOPA [Suspect]
     Active Substance: CARBIDOPA\LEVODOPA
     Dosage: 20 MG + 5 MG
     Dates: start: 20220919, end: 202209
  8. CARBIDOPA\LEVODOPA [Suspect]
     Active Substance: CARBIDOPA\LEVODOPA
     Route: 050
     Dates: start: 20220819, end: 20220901
  9. CARBIDOPA\LEVODOPA [Suspect]
     Active Substance: CARBIDOPA\LEVODOPA
     Dosage: 20 MG + 5 MG?MORN:14.5CC;MAINT:5.5CC/H;EXTRA:2CC
     Route: 050
     Dates: start: 20220929, end: 202210
  10. CARBIDOPA\LEVODOPA [Suspect]
     Active Substance: CARBIDOPA\LEVODOPA
     Dosage: 20 MG + 5 MG
     Dates: start: 20220907, end: 20220908
  11. CARBIDOPA\LEVODOPA [Suspect]
     Active Substance: CARBIDOPA\LEVODOPA
     Dosage: 20 MG + 5 MG
     Dates: start: 20220908, end: 20220913
  12. CARBIDOPA\LEVODOPA [Suspect]
     Active Substance: CARBIDOPA\LEVODOPA
     Dosage: 20 MG + 5 MG
     Dates: start: 20220727, end: 202207
  13. CARBIDOPA\LEVODOPA [Suspect]
     Active Substance: CARBIDOPA\LEVODOPA
     Dosage: 20 MG + 5 MG
     Dates: start: 202209, end: 20220929
  14. CARBIDOPA\LEVODOPA [Suspect]
     Active Substance: CARBIDOPA\LEVODOPA
     Dosage: 20 MG + 5 MG
     Dates: start: 20220801, end: 20220805
  15. CARBIDOPA\LEVODOPA [Suspect]
     Active Substance: CARBIDOPA\LEVODOPA
     Dosage: 20 MG + 5 MG
     Dates: start: 202207, end: 20220731
  16. CARBIDOPA\LEVODOPA [Suspect]
     Active Substance: CARBIDOPA\LEVODOPA
     Dosage: 20 MG + 5 MG
     Dates: start: 202210, end: 202210
  17. CARBIDOPA\LEVODOPA [Suspect]
     Active Substance: CARBIDOPA\LEVODOPA
     Dosage: 20 MG + 5 MG
     Dates: start: 20220916, end: 20220919
  18. CLOZAPINE [Concomitant]
     Active Substance: CLOZAPINE
     Indication: Product used for unknown indication
     Route: 048
     Dates: end: 20220730
  19. CLOZAPINE [Concomitant]
     Active Substance: CLOZAPINE
     Indication: Product used for unknown indication
     Route: 048
  20. CLOZAPINE [Concomitant]
     Active Substance: CLOZAPINE
     Indication: Product used for unknown indication
     Dates: start: 20220730
  21. GABAPENTIN [Concomitant]
     Active Substance: GABAPENTIN
     Indication: Product used for unknown indication
     Route: 048
  22. CLONAZEPAM [Concomitant]
     Active Substance: CLONAZEPAM
     Indication: Product used for unknown indication
     Dosage: 1 TABLET AT BEDTIME
     Route: 048
  23. Sinemet 25/100 (levodopa/carbidopa) [Concomitant]
     Indication: Product used for unknown indication
     Route: 048
     Dates: start: 20220731
  24. TRAZODONE [Concomitant]
     Active Substance: TRAZODONE HYDROCHLORIDE
     Indication: Product used for unknown indication
     Dosage: 1 TABLET AT BEDTIME
     Route: 048
  25. CARVEDILOL [Concomitant]
     Active Substance: CARVEDILOL
     Indication: Product used for unknown indication
     Dosage: 1 TABLET AT DINNER
     Route: 048
  26. PRAVASTATIN [Concomitant]
     Active Substance: PRAVASTATIN
     Indication: Product used for unknown indication
     Dosage: 1 TABLET AT BEDTIME
     Route: 048
  27. METFORMIN PAMOATE [Concomitant]
     Active Substance: METFORMIN PAMOATE
     Indication: Product used for unknown indication
     Route: 048
  28. FOLIC ACID [Concomitant]
     Active Substance: FOLIC ACID
     Indication: Product used for unknown indication
     Dosage: 1 TABLET ON SATURDAY AND SUNDAY
     Route: 048
  29. WARFARIN [Concomitant]
     Active Substance: WARFARIN
     Indication: Product used for unknown indication
     Dosage: 1+ 1/2 TABLET ALTERNATING WITH 2 TABLETS
     Route: 048
  30. BENSERAZIDE HYDROCHLORIDE\LEVODOPA [Concomitant]
     Active Substance: BENSERAZIDE HYDROCHLORIDE\LEVODOPA
     Indication: Product used for unknown indication
     Dosage: 2 TABLETS AT BEDTIME
     Route: 048
  31. TRAZODONE HYDROCHLORIDE [Concomitant]
     Active Substance: TRAZODONE HYDROCHLORIDE
     Indication: Product used for unknown indication
     Dates: start: 202208
  32. CLOZAPINE [Concomitant]
     Active Substance: CLOZAPINE
     Indication: Product used for unknown indication
     Dates: start: 202208
  33. Gutron (midodrine) [Concomitant]
     Indication: Product used for unknown indication
     Dosage: 6 TABLET
     Route: 048
  34. RIVOTRIL [Concomitant]
     Active Substance: CLONAZEPAM
     Indication: Product used for unknown indication
     Dates: start: 202208
  35. Betmiga (mirabegron) [Concomitant]
     Indication: Product used for unknown indication
     Dosage: 1 TABLET
     Route: 048
  36. Sinemet CR (carbidopa/levodopa) [Concomitant]
     Indication: Product used for unknown indication
     Dosage: 1.5 TABLET
     Route: 048

REACTIONS (32)
  - Confusional state [Recovering/Resolving]
  - Hallucination, visual [Recovered/Resolved]
  - Purulent discharge [Recovered/Resolved]
  - Device expulsion [Recovered/Resolved]
  - Urinary tract infection [Recovered/Resolved]
  - C-reactive protein increased [Recovered/Resolved]
  - Defiant behaviour [Recovered/Resolved]
  - Fatigue [Recovered/Resolved]
  - Disorganised speech [Recovered/Resolved]
  - Urine analysis abnormal [Recovered/Resolved]
  - Urine odour abnormal [Recovered/Resolved]
  - C-reactive protein increased [Recovered/Resolved]
  - Mutism [Recovered/Resolved]
  - Delusion [Recovered/Resolved]
  - Aggression [Recovered/Resolved]
  - Pyuria [Recovered/Resolved]
  - Hypophagia [Recovered/Resolved]
  - Productive cough [Recovered/Resolved]
  - Incorrect route of product administration [Recovered/Resolved]
  - Urinary sediment [Recovered/Resolved]
  - Device dislocation [Recovered/Resolved]
  - Off label use [Unknown]
  - Agitation [Recovered/Resolved]
  - Urinary tract infection [Recovered/Resolved]
  - Confusional state [Recovered/Resolved]
  - Leukocyturia [Recovered/Resolved]
  - Therapeutic product effect decreased [Recovered/Resolved]
  - Agitation [Recovering/Resolving]
  - Psychotic disorder [Recovered/Resolved]
  - Respiratory tract infection [Recovered/Resolved]
  - Gastric disorder [Recovered/Resolved]
  - Gastric disorder [Recovered/Resolved]

NARRATIVE: CASE EVENT DATE: 20220601
